FAERS Safety Report 15277683 (Version 1)
Quarter: 2018Q3

REPORT INFORMATION
  Report Type: Spontaneous
  Country: FR (occurrence: FR)
  Receive Date: 20180814
  Receipt Date: 20180814
  Transmission Date: 20181010
  Serious: Yes (Hospitalization)
  Sender: FDA-Public Use
  Company Number: FR-TEVA-2018-FR-940748

PATIENT
  Age: 64 Year
  Sex: Male
  Weight: 74 kg

DRUGS (7)
  1. METHOTREXATE. [Suspect]
     Active Substance: METHOTREXATE
     Indication: PSORIASIS
     Route: 058
     Dates: start: 20170227, end: 20171215
  2. DERMOVAL [Concomitant]
  3. NEBIVOLOL. [Concomitant]
     Active Substance: NEBIVOLOL
  4. ACIDE FOLIQUE [Concomitant]
     Active Substance: FOLIC ACID
  5. ENBREL [Suspect]
     Active Substance: ETANERCEPT
     Indication: PSORIASIS
     Route: 058
     Dates: start: 20171215, end: 20171215
  6. KARDEGIC [Concomitant]
     Active Substance: ASPIRIN DL-LYSINE
  7. PRAVASTATINE SODIQUE [Concomitant]
     Active Substance: PRAVASTATIN SODIUM

REACTIONS (1)
  - Cytomegalovirus hepatitis [Recovered/Resolved]

NARRATIVE: CASE EVENT DATE: 20171219
